FAERS Safety Report 17658361 (Version 4)
Quarter: 2023Q1

REPORT INFORMATION
  Report Type: Report from Study
  Country: BR (occurrence: BR)
  Receive Date: 20200412
  Receipt Date: 20230221
  Transmission Date: 20230418
  Serious: Yes (Other)
  Sender: FDA-Public Use
  Company Number: None

PATIENT
  Age: 73 Year
  Sex: Female

DRUGS (9)
  1. KISQALI [Suspect]
     Active Substance: RIBOCICLIB
     Indication: Breast cancer
     Dosage: 3 DF, QD
     Route: 065
     Dates: start: 20190808
  2. KISQALI [Suspect]
     Active Substance: RIBOCICLIB
     Dosage: 3 DF, QD
     Route: 065
     Dates: start: 201909
  3. LETROZOLE [Suspect]
     Active Substance: LETROZOLE
     Indication: Product used for unknown indication
     Dosage: UNK
     Route: 065
  4. DICLOFENAC SODIUM [Suspect]
     Active Substance: DICLOFENAC SODIUM
     Indication: Product used for unknown indication
     Dosage: UNK
     Route: 065
  5. TAMOXIFEN [Suspect]
     Active Substance: TAMOXIFEN
     Indication: Breast cancer
     Dosage: UNK
     Route: 065
     Dates: start: 1999
  6. ACYCLOVIR [Suspect]
     Active Substance: ACYCLOVIR
     Indication: Herpes virus infection
     Dosage: 400 MG
     Route: 065
  7. CEPHALEXIN [Suspect]
     Active Substance: CEPHALEXIN
     Indication: Product used for unknown indication
     Dosage: UNK
     Route: 065
  8. XGEVA [Concomitant]
     Active Substance: DENOSUMAB
     Indication: Product used for unknown indication
     Dosage: UNK
     Route: 065
  9. ANDRODERM [Concomitant]
     Active Substance: TESTOSTERONE
     Indication: Product used for unknown indication
     Dosage: UNK
     Route: 061

REACTIONS (40)
  - Paraneoplastic syndrome [Unknown]
  - Herpes virus infection [Unknown]
  - Adrenal mass [Unknown]
  - Nephrolithiasis [Unknown]
  - Leukopenia [Unknown]
  - Metastases to central nervous system [Unknown]
  - Metastases to bone [Unknown]
  - Urinary tract infection [Recovered/Resolved]
  - Urinary tract infection [Not Recovered/Not Resolved]
  - White blood cell count decreased [Not Recovered/Not Resolved]
  - Memory impairment [Not Recovered/Not Resolved]
  - Malaise [Recovered/Resolved]
  - Influenza [Unknown]
  - Arthralgia [Unknown]
  - Myalgia [Unknown]
  - Balance disorder [Unknown]
  - Diverticulum [Unknown]
  - Dysphonia [Unknown]
  - Axillary pain [Unknown]
  - Pain [Unknown]
  - Decreased immune responsiveness [Unknown]
  - Bone pain [Unknown]
  - Urinary incontinence [Unknown]
  - Headache [Unknown]
  - Erythema [Unknown]
  - Cough [Unknown]
  - Dizziness [Unknown]
  - Diarrhoea [Unknown]
  - Fatigue [Unknown]
  - Nausea [Recovered/Resolved]
  - Anaemia [Unknown]
  - Anisocytosis [Unknown]
  - Red blood cell count abnormal [Unknown]
  - Platelet count abnormal [Unknown]
  - Pyrexia [Unknown]
  - Blood glucose abnormal [Unknown]
  - Asthenia [Not Recovered/Not Resolved]
  - Skin lesion [Not Recovered/Not Resolved]
  - Poor venous access [Unknown]
  - Emotional disorder [Not Recovered/Not Resolved]

NARRATIVE: CASE EVENT DATE: 20190924
